FAERS Safety Report 11239111 (Version 1)
Quarter: 2015Q3

REPORT INFORMATION
  Report Type: Report from Study
  Country: US (occurrence: US)
  Receive Date: 20150706
  Receipt Date: 20150706
  Transmission Date: 20151125
  Serious: Yes (Hospitalization)
  Sender: FDA-Public Use
  Company Number: US-ABBVIE-15K-163-1417332-00

PATIENT
  Age: 64 Year
  Sex: Female

DRUGS (2)
  1. HUMIRA [Suspect]
     Active Substance: ADALIMUMAB
     Indication: RHEUMATOID ARTHRITIS
     Route: 065
     Dates: end: 20141010
  2. HUMIRA [Suspect]
     Active Substance: ADALIMUMAB
     Route: 065
     Dates: start: 20150609

REACTIONS (5)
  - Expired product administered [Recovered/Resolved]
  - Hernia pain [Recovering/Resolving]
  - Dyspnoea [Recovering/Resolving]
  - Hiatus hernia [Unknown]
  - Wound dehiscence [Recovered/Resolved]

NARRATIVE: CASE EVENT DATE: 2009
